FAERS Safety Report 13987279 (Version 2)
Quarter: 2017Q4

REPORT INFORMATION
  Report Type: Spontaneous
  Country: DE (occurrence: DE)
  Receive Date: 20170919
  Receipt Date: 20171010
  Transmission Date: 20180321
  Serious: Yes (Other)
  Sender: FDA-Public Use
  Company Number: DE-TEVA-805897GER

PATIENT
  Age: 73 Year
  Sex: Female
  Weight: 67 kg

DRUGS (11)
  1. SITAGLIPTIN 50 MG [Concomitant]
  2. HEPARIN-NATRIUM-25 000-RATIOPHARM [Suspect]
     Active Substance: HEPARIN SODIUM
     Route: 065
     Dates: start: 20170814, end: 20170814
  3. NEBIVOLOL 5 MG [Concomitant]
  4. TRANEXAMIC ACID. [Suspect]
     Active Substance: TRANEXAMIC ACID
     Dates: start: 20170814, end: 20170814
  5. TORASEMID 10 MG [Concomitant]
  6. INSULIN GLARGIN 300 I.U. [Concomitant]
  7. AMLODIPIN 10 MG [Concomitant]
     Active Substance: AMLODIPINE BESYLATE
  8. SIMVASTATIN 40 MG [Concomitant]
     Active Substance: SIMVASTATIN
  9. RAMIPRIL 5 MG [Concomitant]
     Active Substance: RAMIPRIL
  10. LEVOTHYROXIN 25MG [Concomitant]
  11. PANTOPRAZOLE SODIUM. [Concomitant]
     Active Substance: PANTOPRAZOLE SODIUM

REACTIONS (3)
  - Vasodilatation [Recovered/Resolved]
  - Blood pressure decreased [Unknown]
  - Circulatory collapse [Unknown]

NARRATIVE: CASE EVENT DATE: 20170814
